FAERS Safety Report 25957551 (Version 2)
Quarter: 2025Q4

REPORT INFORMATION
  Report Type: Spontaneous
  Country: EU (occurrence: EU)
  Receive Date: 20251024
  Receipt Date: 20251105
  Transmission Date: 20260118
  Serious: Yes (Other)
  Sender: Haleon PLC
  Company Number: EU-002147023-NVSC2025GR162281

PATIENT

DRUGS (1)
  1. DICLOFENAC [Suspect]
     Active Substance: DICLOFENAC
     Indication: Product used for unknown indication
     Dosage: UNK, ROUTE: UNKNOWN

REACTIONS (3)
  - Gastrointestinal haemorrhage [Unknown]
  - Anaphylactic reaction [Unknown]
  - Abdominal pain [Unknown]
